FAERS Safety Report 8875588 (Version 1)
Quarter: 2012Q4

REPORT INFORMATION
  Report Type: 
  Country: US (occurrence: US)
  Receive Date: 20121023
  Receipt Date: 20121023
  Transmission Date: 20130627
  Serious: Yes (Hospitalization)
  Sender: FDA-Public Use
  Company Number: US-BAYER-2012-109827

PATIENT
  Age: 65 Year
  Sex: Female

DRUGS (1)
  1. NIMOTOP [Suspect]
     Indication: SUBARACHNOID HEMORRHAGE
     Dosage: UNK
     Dates: start: 20120924

REACTIONS (2)
  - Hypotension [None]
  - Dizziness [None]
